FAERS Safety Report 16814062 (Version 1)
Quarter: 2019Q3

REPORT INFORMATION
  Report Type: Other
  Country: US (occurrence: US)
  Receive Date: 20190917
  Receipt Date: 20190917
  Transmission Date: 20191005
  Serious: Yes (Other)
  Sender: FDA-Public Use
  Company Number: US-FDC LIMITED-2074513

PATIENT
  Age: 7 Year
  Sex: Male

DRUGS (5)
  1. DEXAMETHASONE. [Concomitant]
     Active Substance: DEXAMETHASONE
     Route: 065
  2. VINCRISTINE SULFATE. [Concomitant]
     Active Substance: VINCRISTINE SULFATE
     Route: 042
  3. CIPROFLOXACIN. [Suspect]
     Active Substance: CIPROFLOXACIN
     Indication: BK VIRUS INFECTION
     Route: 065
  4. 6-MERCAPTOPURINE [Suspect]
     Active Substance: MERCAPTOPURINE
     Route: 065
  5. METHOTREXATE. [Interacting]
     Active Substance: METHOTREXATE
     Route: 065

REACTIONS (2)
  - Drug interaction [Unknown]
  - Venoocclusive liver disease [Unknown]
